FAERS Safety Report 6372030-4 (Version None)
Quarter: 2009Q3

REPORT INFORMATION
  Report Type: 
  Country: None (occurrence: None)
  Receive Date: 20090917
  Receipt Date: 20090907
  Transmission Date: 20100115
  Serious: Yes (Life-Threatening)
  Sender: FDA-Public Use
  Company Number: IDA-00256

PATIENT
  Age: 52 Year
  Sex: Female

DRUGS (2)
  1. PROPRANDOLOL [Suspect]
     Dosage: 10 MG BID FORMULATION
  2. (PHENYLEPHRINE) [Suspect]
     Indication: BLOOD PRESSURE MANAGEMENT
     Dosage: FORMULATION: INJECTION

REACTIONS (2)
  - ACUTE PULMONARY OEDEMA [None]
  - DRUG INTERACTION [None]
